FAERS Safety Report 9720065 (Version 2)
Quarter: 2013Q4

REPORT INFORMATION
  Report Type: Spontaneous
  Country: US (occurrence: US)
  Receive Date: 20131128
  Receipt Date: 20131227
  Transmission Date: 20140711
  Serious: Yes (Hospitalization, Other)
  Sender: FDA-Public Use
  Company Number: US-ASTRAZENECA-2013SE86227

PATIENT
  Age: 65 Year
  Sex: Male
  Weight: 129.7 kg

DRUGS (20)
  1. SYMBICORT [Suspect]
     Indication: ASTHMA
     Dosage: 80/4.5 ONE PUFF TWO TIME AS A DAY
     Route: 055
  2. SYMBICORT [Suspect]
     Indication: CHRONIC OBSTRUCTIVE PULMONARY DISEASE
     Dosage: 80/4.5 ONE PUFF TWO TIME AS A DAY
     Route: 055
  3. SYMBICORT [Suspect]
     Indication: ASTHMA
     Dosage: 80/4.5 ONE PUFF TWO TIMEAS A DAY
     Route: 055
     Dates: start: 20131021
  4. SYMBICORT [Suspect]
     Indication: CHRONIC OBSTRUCTIVE PULMONARY DISEASE
     Dosage: 80/4.5 ONE PUFF TWO TIMEAS A DAY
     Route: 055
     Dates: start: 20131021
  5. SPIRIVA [Concomitant]
     Indication: ASTHMA
     Dosage: EVERY MORNING
     Route: 055
  6. SPIRIVA [Concomitant]
     Indication: CHRONIC OBSTRUCTIVE PULMONARY DISEASE
     Dosage: EVERY MORNING
     Route: 055
  7. XOPENEX [Concomitant]
     Indication: WHEEZING
     Dosage: 2 PUFFS AS REQUIRED
     Route: 055
  8. KOMBIGLYZE [Concomitant]
     Indication: DIABETES MELLITUS
     Dosage: 1000 MG
  9. APIDRA INSULIN [Concomitant]
     Indication: DIABETES MELLITUS
     Dosage: 4 U EVERY MORNING
  10. LANTUS INSULIN [Concomitant]
     Indication: DIABETES MELLITUS
     Dosage: 30 U AT NIGHT
  11. LIPITOR [Concomitant]
     Indication: ANTIPLATELET THERAPY
     Dates: start: 201310
  12. PLAVIX [Concomitant]
     Indication: ANTIPLATELET THERAPY
     Dates: start: 201310
  13. METOPROLOL TARTRATE [Concomitant]
     Indication: BLOOD PRESSURE
  14. ASPIRIN [Concomitant]
     Indication: CARDIAC DISORDER
  15. FLOMAX [Concomitant]
     Dosage: EVERY MORNING
  16. LANTAPROST [Concomitant]
     Indication: GLAUCOMA
     Route: 050
     Dates: start: 2008
  17. TIMOPTIC [Concomitant]
     Indication: GLAUCOMA
     Route: 050
     Dates: start: 2008
  18. TRIBENZOR [Concomitant]
     Indication: BLOOD PRESSURE
  19. TRIBENZOR [Concomitant]
     Indication: DIURETIC THERAPY
  20. SOMA [Concomitant]
     Indication: SLEEP DISORDER
     Dosage: AS REQUIRED
     Route: 048

REACTIONS (3)
  - Asthma [Recovered/Resolved]
  - Glaucoma [Not Recovered/Not Resolved]
  - Off label use [Not Recovered/Not Resolved]
